FAERS Safety Report 18994731 (Version 1)
Quarter: 2021Q1

REPORT INFORMATION
  Report Type: Spontaneous
  Country: CA (occurrence: CA)
  Receive Date: 20210311
  Receipt Date: 20210311
  Transmission Date: 20210420
  Serious: Yes (Other)
  Sender: FDA-Public Use
  Company Number: CA-AUROBINDO-AUR-APL-2020-044440

PATIENT
  Age: 50 Year
  Sex: Female

DRUGS (11)
  1. PREDNISONE. [Suspect]
     Active Substance: PREDNISONE
     Dosage: 50 MILLIGRAM (10 DAYS) (5MG EVERY 5 DAYS)
     Route: 048
  2. COTRIMOXAZOLE [Suspect]
     Active Substance: SULFAMETHOXAZOLE\TRIMETHOPRIM
     Indication: PYODERMA GANGRENOSUM
     Dosage: UNK
     Route: 065
  3. FOLIC ACID. [Suspect]
     Active Substance: FOLIC ACID
     Indication: PYODERMA GANGRENOSUM
     Dosage: UNK
     Route: 065
  4. METHOTREXATE. [Suspect]
     Active Substance: METHOTREXATE
     Indication: PYODERMA GANGRENOSUM
     Dosage: 15 MILLIGRAM, EVERY WEEK
     Route: 065
  5. PREDNISONE. [Suspect]
     Active Substance: PREDNISONE
     Indication: PYODERMA GANGRENOSUM
     Dosage: 40 MILLIGRAM, EVERY WEEK, (50MG FOR I 0 DAYS, FOLLOWED BY 5MG EVERY 5 DAYS)
     Route: 048
  6. CLINDAMYCIN. [Suspect]
     Active Substance: CLINDAMYCIN
     Indication: PYODERMA GANGRENOSUM
     Dosage: UNK
     Route: 065
  7. CLOBETASOL [Suspect]
     Active Substance: CLOBETASOL
     Indication: PYODERMA GANGRENOSUM
     Dosage: UNK UNK, ONCE A DAY
     Route: 061
  8. PREDNISONE. [Suspect]
     Active Substance: PREDNISONE
     Dosage: 5 MILLIGRAM
     Route: 065
  9. DESVENLAFAXINE. [Concomitant]
     Active Substance: DESVENLAFAXINE
     Indication: DEPRESSION
     Dosage: UNK
     Route: 065
  10. SECUKINUMAB. [Suspect]
     Active Substance: SECUKINUMAB
     Indication: PYODERMA GANGRENOSUM
     Dosage: 300 MILLIGRAM, EVERY WEEK
     Route: 058
  11. SECUKINUMAB. [Suspect]
     Active Substance: SECUKINUMAB
     Dosage: 300 MILLIGRAM 1 EVERY 1 MONTH
     Route: 058

REACTIONS (2)
  - Off label use [Unknown]
  - Drug ineffective [Unknown]
